FAERS Safety Report 23441731 (Version 1)
Quarter: 2024Q1

REPORT INFORMATION
  Report Type: Spontaneous
  Country: US (occurrence: US)
  Receive Date: 20240125
  Receipt Date: 20240125
  Transmission Date: 20240409
  Serious: No
  Sender: FDA-Public Use
  Company Number: US-AUROBINDO-AUR-APL-2023-048256

PATIENT
  Age: 41 Year
  Sex: Female
  Weight: 72.5 kg

DRUGS (3)
  1. PROGESTERONE [Suspect]
     Active Substance: PROGESTERONE
     Indication: Assisted fertilisation
     Dosage: UNK, ONCE A DAY (1.5 CC ONCE A DAY AT BACK GROOVE MUSCLE AREA)
     Route: 065
  2. ESTRADIOL [Concomitant]
     Active Substance: ESTRADIOL
     Indication: Product used for unknown indication
     Dosage: UNK
     Route: 065
  3. LEVOTHYROXINE [Concomitant]
     Active Substance: LEVOTHYROXINE\LEVOTHYROXINE SODIUM
     Indication: Product used for unknown indication
     Dosage: UNK
     Route: 065

REACTIONS (5)
  - Injection site swelling [Not Recovered/Not Resolved]
  - Hypersensitivity [Not Recovered/Not Resolved]
  - Pruritus [Not Recovered/Not Resolved]
  - Injection site erythema [Not Recovered/Not Resolved]
  - Product substitution issue [Unknown]
